FAERS Safety Report 4834062-4 (Version None)
Quarter: 2005Q4

REPORT INFORMATION
  Report Type: 
  Country: None (occurrence: None)
  Receive Date: 20051118
  Receipt Date: 20051118
  Transmission Date: 20060501
  Serious: Yes (Other)
  Sender: FDA-Public Use
  Company Number: None

PATIENT
  Age: 46 Year
  Sex: Male
  Weight: 58.514 kg

DRUGS (4)
  1. AMIFOSTINE [Suspect]
     Indication: DRY MOUTH
     Dosage: 500 MG SQ DAILY M-T PRIOR TO RT SIX DOSES SINCE 11/09/05
     Route: 058
     Dates: start: 20051109
  2. AMIFOSTINE [Suspect]
     Indication: NEOPLASM MALIGNANT
     Dosage: 500 MG SQ DAILY M-T PRIOR TO RT SIX DOSES SINCE 11/09/05
     Route: 058
     Dates: start: 20051109
  3. COMPAZINE [Concomitant]
  4. REGLAN [Concomitant]

REACTIONS (3)
  - ERYTHEMA [None]
  - RASH MACULAR [None]
  - SKIN REACTION [None]
